FAERS Safety Report 21375401 (Version 2)
Quarter: 2024Q1

REPORT INFORMATION
  Report Type: Report from Study
  Country: CA (occurrence: None)
  Receive Date: 20220926
  Receipt Date: 20240102
  Transmission Date: 20240410
  Serious: Yes (Other)
  Sender: FDA-Public Use
  Company Number: CA-PFIZER INC-202201179434

PATIENT
  Age: 58 Year
  Sex: Female

DRUGS (9)
  1. METHOTREXATE [Suspect]
     Active Substance: METHOTREXATE
     Indication: Product used for unknown indication
  2. COSENTYX [Suspect]
     Active Substance: SECUKINUMAB
     Indication: Psoriasis
  3. COSENTYX [Suspect]
     Active Substance: SECUKINUMAB
  4. COSENTYX [Suspect]
     Active Substance: SECUKINUMAB
  5. COSENTYX [Suspect]
     Active Substance: SECUKINUMAB
  6. ACITRETIN [Concomitant]
     Active Substance: ACITRETIN
  7. CLOBETASOL [Concomitant]
     Active Substance: CLOBETASOL
  8. STELARA [Concomitant]
     Active Substance: USTEKINUMAB
  9. METHOTREXATE [Concomitant]
     Active Substance: METHOTREXATE

REACTIONS (12)
  - Drug ineffective [Recovering/Resolving]
  - Product use issue [Recovering/Resolving]
  - Cellulitis [Recovering/Resolving]
  - Emotional distress [Recovering/Resolving]
  - Erythema [Recovering/Resolving]
  - Induration [Recovering/Resolving]
  - Pain of skin [Recovering/Resolving]
  - Pruritus [Recovering/Resolving]
  - Psoriasis [Recovering/Resolving]
  - Rash [Recovering/Resolving]
  - Self-consciousness [Recovering/Resolving]
  - Skin exfoliation [Recovering/Resolving]
